FAERS Safety Report 18679291 (Version 1)
Quarter: 2020Q4

REPORT INFORMATION
  Report Type: Report from Study
  Country: GR (occurrence: GR)
  Receive Date: 20201229
  Receipt Date: 20201229
  Transmission Date: 20210114
  Serious: Yes (Death, Hospitalization, Other)
  Sender: FDA-Public Use
  Company Number: GR-JNJFOC-A-CH2019-186933

PATIENT
  Age: 80 Year
  Sex: Female
  Weight: 84 kg

DRUGS (15)
  1. LASIX [Concomitant]
     Active Substance: FUROSEMIDE
     Indication: CARDIAC FAILURE
     Dosage: UNK
     Route: 048
     Dates: start: 20130101
  2. LASIX [Concomitant]
     Active Substance: FUROSEMIDE
     Indication: PULMONARY ARTERIAL HYPERTENSION
     Dosage: UNK
     Route: 042
     Dates: end: 20200214
  3. LASIX [Concomitant]
     Active Substance: FUROSEMIDE
     Indication: CONDITION AGGRAVATED
  4. BLOCATENS [Concomitant]
     Active Substance: BISOPROLOL FUMARATE
     Indication: ATRIAL FIBRILLATION
     Dosage: UNK
     Route: 048
     Dates: start: 20181215, end: 20200214
  5. ALDACTONE [Concomitant]
     Active Substance: SPIRONOLACTONE
     Indication: CARDIAC FAILURE
     Dosage: UNK
     Route: 048
     Dates: start: 20180427, end: 20200214
  6. LANTUS [Concomitant]
     Active Substance: INSULIN GLARGINE
     Indication: TYPE 2 DIABETES MELLITUS
     Dosage: UNK
     Route: 058
     Dates: start: 20120601, end: 20200214
  7. PANTIUM [Concomitant]
     Indication: ABDOMINAL DISCOMFORT
     Dosage: UNK
     Route: 048
     Dates: start: 20181215, end: 20200214
  8. TARDYFERON [Concomitant]
     Active Substance: FERROUS SULFATE
     Indication: ANAEMIA
     Dosage: UNK
     Route: 048
     Dates: start: 20190125, end: 20200214
  9. DELIPOST [Concomitant]
     Indication: HYPERCHOLESTEROLAEMIA
     Dosage: UNK
     Route: 048
     Dates: start: 20180505, end: 20200214
  10. PRADAXA [Concomitant]
     Active Substance: DABIGATRAN ETEXILATE MESYLATE
     Indication: ATRIAL FIBRILLATION
     Dosage: UNK
     Route: 048
     Dates: start: 20180427, end: 20200214
  11. SOLURIC [Concomitant]
     Active Substance: ALLOPURINOL
     Indication: HYPERURICAEMIA
     Dosage: UNK
     Route: 048
     Dates: start: 20181215, end: 20200214
  12. OPSUMIT [Suspect]
     Active Substance: MACITENTAN
     Indication: PULMONARY ARTERIAL HYPERTENSION
     Dosage: 10 MG, QD
     Route: 048
     Dates: start: 20190126, end: 20200214
  13. SILDENAFIL. [Concomitant]
     Active Substance: SILDENAFIL
     Indication: PULMONARY ARTERIAL HYPERTENSION
     Dosage: 40 MG, QD
     Route: 048
     Dates: start: 20191129, end: 20200214
  14. GLUCOFREE [Concomitant]
     Indication: TYPE 2 DIABETES MELLITUS
     Dosage: UNK
     Route: 048
     Dates: start: 20030101, end: 20200214
  15. LASIX [Concomitant]
     Active Substance: FUROSEMIDE
     Indication: DISEASE PROGRESSION

REACTIONS (29)
  - Oedema peripheral [Recovered/Resolved]
  - Respiratory failure [Not Recovered/Not Resolved]
  - Blood sodium decreased [Unknown]
  - Sepsis [Fatal]
  - C-reactive protein increased [Fatal]
  - Hypothermia [Fatal]
  - Condition aggravated [Recovered/Resolved]
  - Dyspnoea exertional [Recovered/Resolved]
  - Weight increased [Recovered/Resolved]
  - Fracture [Unknown]
  - Pulmonary arterial hypertension [Recovered/Resolved]
  - Disease progression [Recovered/Resolved]
  - Diabetes mellitus inadequate control [Not Recovered/Not Resolved]
  - Blood glucose increased [Not Recovered/Not Resolved]
  - Acute kidney injury [Not Recovered/Not Resolved]
  - White blood cell count decreased [Fatal]
  - Dyspnoea [Recovered/Resolved]
  - Right ventricular failure [Not Recovered/Not Resolved]
  - Tachypnoea [Not Recovered/Not Resolved]
  - Blood urea increased [Unknown]
  - Fatigue [Not Recovered/Not Resolved]
  - Decreased appetite [Not Recovered/Not Resolved]
  - Hypoxia [Not Recovered/Not Resolved]
  - Hypotension [Fatal]
  - Oedema [Not Recovered/Not Resolved]
  - Carbon dioxide increased [Not Recovered/Not Resolved]
  - Renal impairment [Unknown]
  - Confusional state [Fatal]
  - Blood creatinine increased [Unknown]

NARRATIVE: CASE EVENT DATE: 20190214
